FAERS Safety Report 5315771-X (Version None)
Quarter: 2007Q2

REPORT INFORMATION
  Report Type: 
  Country: None (occurrence: None)
  Receive Date: 20070503
  Receipt Date: 20070423
  Transmission Date: 20071010
  Serious: Yes (Other)
  Sender: FDA-Public Use
  Company Number: TW-JNJFOC-20070307207

PATIENT
  Sex: Male

DRUGS (3)
  1. CHLORZOXAZONE W/ APAP [Suspect]
     Indication: PAIN
     Route: 048
  2. CHLORZOXAZONE W/ APAP [Suspect]
     Indication: MUSCLE SPASMS
     Dosage: ONE DOSE=300/250 MG
     Route: 048
  3. BENFOTIAMINE W/CYANOCOBALAMINE/PYRIDOXINE [Concomitant]

REACTIONS (2)
  - LIP OEDEMA [None]
  - OCULAR HYPERAEMIA [None]
